FAERS Safety Report 18208677 (Version 1)
Quarter: 2020Q3

REPORT INFORMATION
  Report Type: Spontaneous
  Country: FR (occurrence: FR)
  Receive Date: 20200828
  Receipt Date: 20200828
  Transmission Date: 20201103
  Serious: Yes (Hospitalization)
  Sender: FDA-Public Use
  Company Number: FR-009507513-2008FRA012669

PATIENT
  Age: 32 Year
  Sex: Female

DRUGS (2)
  1. TRACTOCILE [Suspect]
     Active Substance: ATOSIBAN
     Indication: THREATENED LABOUR
     Dosage: 7.5 MG/ML, SOLUTION INJECTABLE
     Route: 041
     Dates: start: 20200703, end: 20200705
  2. CELESTENE 4MG/1ML [Suspect]
     Active Substance: BETAMETHASONE
     Indication: THREATENED LABOUR
     Dosage: UNK
     Route: 041
     Dates: start: 20200704, end: 20200705

REACTIONS (3)
  - Pleural effusion [Recovering/Resolving]
  - Pericardial effusion [Recovering/Resolving]
  - Dyspnoea [Recovering/Resolving]

NARRATIVE: CASE EVENT DATE: 20200705
